FAERS Safety Report 6029872-4 (Version None)
Quarter: 2008Q4

REPORT INFORMATION
  Report Type: 
  Country: None (occurrence: None)
  Receive Date: 20081231
  Receipt Date: 20081231
  Transmission Date: 20090506
  Serious: Yes (Death, Hospitalization)
  Sender: FDA-Public Use
  Company Number: None

PATIENT
  Age: 81 Year
  Sex: Male

DRUGS (7)
  1. MEZAVANT XL (MESALAZINE,MESALAMINE) TABLET [Suspect]
     Indication: COLITIS ULCERATIVE
     Dosage: UNK, UNKNOWN, UNKNOWN
     Dates: start: 20080409, end: 20080622
  2. CO-BENELDOPA [Concomitant]
  3. CODEINE PHOSPHATE [Concomitant]
  4. METRONIDAZOLE [Concomitant]
  5. OMEPRAZOLE [Concomitant]
  6. ACETAMINOPHEN [Concomitant]
  7. PREDNISOLONE [Concomitant]

REACTIONS (1)
  - AGRANULOCYTOSIS [None]
